FAERS Safety Report 24149277 (Version 1)
Quarter: 2024Q3

REPORT INFORMATION
  Report Type: Spontaneous
  Country: CA (occurrence: CA)
  Receive Date: 20240730
  Receipt Date: 20240730
  Transmission Date: 20241017
  Serious: Yes (Death, Life-Threatening, Hospitalization, Disabling, Other)
  Sender: Haleon PLC
  Company Number: CA-HALEON-2188251

PATIENT
  Age: 44 Year
  Sex: Female

DRUGS (204)
  1. DICLOFENAC POTASSIUM [Suspect]
     Active Substance: DICLOFENAC POTASSIUM
     Indication: Rheumatoid arthritis
     Route: 048
  2. CALTRATE [Suspect]
     Active Substance: CALCIUM CARBONATE
     Indication: Product used for unknown indication
     Route: 065
  3. CETIRIZINE HYDROCHLORIDE [Suspect]
     Active Substance: CETIRIZINE HYDROCHLORIDE
     Indication: Rheumatoid arthritis
     Route: 048
  4. CETIRIZINE HYDROCHLORIDE [Suspect]
     Active Substance: CETIRIZINE HYDROCHLORIDE
     Indication: Off label use
     Route: 048
  5. ACETAMINOPHEN [Suspect]
     Active Substance: ACETAMINOPHEN
     Indication: Rheumatoid arthritis
     Route: 058
  6. TUMS ULTRA [Suspect]
     Active Substance: CALCIUM CARBONATE
     Indication: Product used for unknown indication
     Route: 065
  7. CALTRATE [Suspect]
     Active Substance: CALCIUM CARBONATE
     Indication: Rheumatoid arthritis
     Route: 065
  8. DICLOFENAC DIETHYLAMINE [Suspect]
     Active Substance: DICLOFENAC DIETHYLAMINE
     Indication: Rheumatoid arthritis
     Route: 047
  9. DICLOFENAC DIETHYLAMINE [Suspect]
     Active Substance: DICLOFENAC DIETHYLAMINE
     Route: 058
  10. DICLOFENAC DIETHYLAMINE [Suspect]
     Active Substance: DICLOFENAC DIETHYLAMINE
  11. PANTOPRAZOLE SODIUM [Suspect]
     Active Substance: PANTOPRAZOLE SODIUM
     Indication: Rheumatoid arthritis
     Route: 016
  12. PANTOPRAZOLE SODIUM [Suspect]
     Active Substance: PANTOPRAZOLE SODIUM
     Route: 048
  13. METHOTREXATE [Suspect]
     Active Substance: METHOTREXATE
     Indication: Rheumatoid arthritis
     Route: 016
  14. METHOTREXATE [Suspect]
     Active Substance: METHOTREXATE
     Route: 048
  15. METHOTREXATE [Suspect]
     Active Substance: METHOTREXATE
     Route: 048
  16. METHOTREXATE [Suspect]
     Active Substance: METHOTREXATE
     Route: 065
  17. METHOTREXATE [Suspect]
     Active Substance: METHOTREXATE
     Route: 016
  18. METHOTREXATE [Suspect]
     Active Substance: METHOTREXATE
     Route: 048
  19. METHOTREXATE [Suspect]
     Active Substance: METHOTREXATE
     Route: 048
  20. METHOTREXATE [Suspect]
     Active Substance: METHOTREXATE
     Route: 065
  21. MESALAMINE [Suspect]
     Active Substance: MESALAMINE
     Indication: Crohn^s disease
     Route: 065
  22. MELOXICAM [Suspect]
     Active Substance: MELOXICAM
     Indication: Product used for unknown indication
     Route: 065
  23. MAGNESIUM [Suspect]
     Active Substance: MAGNESIUM
     Indication: Product used for unknown indication
     Route: 048
  24. LYRICA [Suspect]
     Active Substance: PREGABALIN
     Indication: Rheumatoid arthritis
     Route: 048
  25. LORAZEPAM [Suspect]
     Active Substance: LORAZEPAM
     Indication: Rheumatoid arthritis
     Route: 065
  26. CLIOQUINOL\FLUMETHASONE [Suspect]
     Active Substance: CLIOQUINOL\FLUMETHASONE
     Indication: Product used for unknown indication
     Route: 065
  27. LEFLUNOMIDE [Suspect]
     Active Substance: LEFLUNOMIDE
     Indication: Rheumatoid arthritis
     Route: 065
  28. LEFLUNOMIDE [Suspect]
     Active Substance: LEFLUNOMIDE
     Route: 048
  29. LANSOPRAZOLE [Suspect]
     Active Substance: LANSOPRAZOLE
     Indication: Rheumatoid arthritis
     Dosage: UNK (DELAYED RELEASE)
     Route: 048
  30. ISOPROPYL ALCOHOL [Suspect]
     Active Substance: ISOPROPYL ALCOHOL
     Indication: Product used for unknown indication
     Dosage: UNK (TOPICAL)
     Route: 065
  31. INFLIXIMAB [Suspect]
     Active Substance: INFLIXIMAB
     Indication: Rheumatoid arthritis
     Route: 065
  32. ZESTRIL [Suspect]
     Active Substance: LISINOPRIL
     Indication: Product used for unknown indication
     Route: 048
  33. XELJANZ [Suspect]
     Active Substance: TOFACITINIB CITRATE
     Indication: Rheumatoid arthritis
     Route: 048
  34. XELJANZ [Suspect]
     Active Substance: TOFACITINIB CITRATE
     Route: 065
  35. XELJANZ [Suspect]
     Active Substance: TOFACITINIB CITRATE
     Route: 048
  36. XELJANZ [Suspect]
     Active Substance: TOFACITINIB CITRATE
     Route: 048
  37. SULFASALAZINE [Suspect]
     Active Substance: SULFASALAZINE
     Indication: Rheumatoid arthritis
     Route: 048
  38. SULFASALAZINE [Suspect]
     Active Substance: SULFASALAZINE
     Route: 048
  39. SULFASALAZINE [Suspect]
     Active Substance: SULFASALAZINE
     Route: 048
  40. SULFASALAZINE [Suspect]
     Active Substance: SULFASALAZINE
     Route: 048
  41. SULFASALAZINE [Suspect]
     Active Substance: SULFASALAZINE
     Route: 048
  42. SULFASALAZINE [Suspect]
     Active Substance: SULFASALAZINE
     Route: 048
  43. SULFASALAZINE [Suspect]
     Active Substance: SULFASALAZINE
     Route: 065
  44. SULFASALAZINE [Suspect]
     Active Substance: SULFASALAZINE
     Route: 058
  45. SULFASALAZINE [Suspect]
     Active Substance: SULFASALAZINE
     Route: 048
  46. SULFASALAZINE [Suspect]
     Active Substance: SULFASALAZINE
     Route: 048
  47. SULFASALAZINE [Suspect]
     Active Substance: SULFASALAZINE
     Route: 048
  48. SULFASALAZINE [Suspect]
     Active Substance: SULFASALAZINE
     Route: 048
  49. SULFASALAZINE [Suspect]
     Active Substance: SULFASALAZINE
     Route: 048
  50. SULFAMETHOXAZOLE AND TRIMETHOPRIM [Suspect]
     Active Substance: SULFAMETHOXAZOLE\TRIMETHOPRIM
     Indication: Product used for unknown indication
  51. STELARA [Suspect]
     Active Substance: USTEKINUMAB
     Indication: Product used for unknown indication
     Route: 058
  52. SIMPONI [Suspect]
     Active Substance: GOLIMUMAB
     Indication: Rheumatoid arthritis
     Dosage: UNK (SUBCUTANEOUS)
     Route: 048
  53. SIMPONI [Suspect]
     Active Substance: GOLIMUMAB
     Route: 058
  54. ALBUTEROL [Suspect]
     Active Substance: ALBUTEROL
     Indication: Product used for unknown indication
  55. DIETARY SUPPLEMENT\HERBALS [Suspect]
     Active Substance: DIETARY SUPPLEMENT\HERBALS
     Indication: Product used for unknown indication
     Route: 065
  56. HYALURONIDASE (HUMAN RECOMBINANT) [Suspect]
     Active Substance: HYALURONIDASE (HUMAN RECOMBINANT)
     Indication: Rheumatoid arthritis
     Dosage: UNK (RITUXIMAB/VORHYALURONIDASE ALFA)
     Route: 058
  57. RITUXIMAB [Suspect]
     Active Substance: RITUXIMAB
     Indication: Rheumatoid arthritis
     Route: 042
  58. RITUXIMAB [Suspect]
     Active Substance: RITUXIMAB
     Route: 016
  59. RAMIPRIL [Suspect]
     Active Substance: RAMIPRIL
     Indication: Product used for unknown indication
     Route: 016
  60. QUETIAPINE [Suspect]
     Active Substance: QUETIAPINE
     Indication: Product used for unknown indication
  61. PSEUDOEPHEDRINE [Suspect]
     Active Substance: PSEUDOEPHEDRINE
     Indication: Rheumatoid arthritis
  62. PSEUDOEPHEDRINE [Suspect]
     Active Substance: PSEUDOEPHEDRINE
     Indication: Off label use
  63. PSEUDOEPHEDRINE [Suspect]
     Active Substance: PSEUDOEPHEDRINE
  64. PSEUDOEPHEDRINE [Suspect]
     Active Substance: PSEUDOEPHEDRINE
  65. PREVACID [Suspect]
     Active Substance: LANSOPRAZOLE
     Indication: Product used for unknown indication
     Route: 048
  66. PREGABALIN [Suspect]
     Active Substance: PREGABALIN
     Indication: Rheumatoid arthritis
  67. PREDNISONE [Suspect]
     Active Substance: PREDNISONE
     Indication: Rheumatoid arthritis
     Route: 048
  68. PREDNISONE [Suspect]
     Active Substance: PREDNISONE
     Indication: Condition aggravated
     Route: 048
  69. PREDNISONE [Suspect]
     Active Substance: PREDNISONE
     Indication: Arthralgia
     Route: 048
  70. PREDNISONE [Suspect]
     Active Substance: PREDNISONE
     Route: 048
  71. PREDNISONE [Suspect]
     Active Substance: PREDNISONE
     Route: 065
  72. PIROXICAM [Suspect]
     Active Substance: PIROXICAM
     Indication: Product used for unknown indication
  73. PHTHALYLSULFATHIAZOLE [Suspect]
     Active Substance: PHTHALYLSULFATHIAZOLE
     Indication: Rheumatoid arthritis
     Route: 005
  74. PHTHALYLSULFATHIAZOLE [Suspect]
     Active Substance: PHTHALYLSULFATHIAZOLE
     Route: 048
  75. PHTHALYLSULFATHIAZOLE [Suspect]
     Active Substance: PHTHALYLSULFATHIAZOLE
     Route: 016
  76. PHTHALYLSULFATHIAZOLE [Suspect]
     Active Substance: PHTHALYLSULFATHIAZOLE
     Route: 048
  77. PERIOGARD [Suspect]
     Active Substance: CHLORHEXIDINE GLUCONATE
     Indication: Product used for unknown indication
  78. AMINOSALICYLIC ACID [Suspect]
     Active Substance: AMINOSALICYLIC ACID
     Indication: Product used for unknown indication
  79. PANTOPRAZOLE SODIUM [Suspect]
     Active Substance: PANTOPRAZOLE SODIUM
     Indication: Rheumatoid arthritis
     Route: 048
  80. OTEZLA [Suspect]
     Active Substance: APREMILAST
     Indication: Rheumatoid arthritis
     Route: 065
  81. OTEZLA [Suspect]
     Active Substance: APREMILAST
     Route: 048
  82. OTEZLA [Suspect]
     Active Substance: APREMILAST
     Route: 065
  83. ORENCIA [Suspect]
     Active Substance: ABATACEPT
     Indication: Rheumatoid arthritis
     Route: 058
  84. ORENCIA [Suspect]
     Active Substance: ABATACEPT
     Route: 065
  85. NAPROXEN SODIUM [Suspect]
     Active Substance: NAPROXEN\NAPROXEN SODIUM
     Indication: Rheumatoid arthritis
     Route: 065
  86. NAPROXEN SODIUM [Suspect]
     Active Substance: NAPROXEN\NAPROXEN SODIUM
     Route: 065
  87. MYCOPHENOLATE MOFETIL [Suspect]
     Active Substance: MYCOPHENOLATE MOFETIL
     Indication: Rheumatoid arthritis
  88. MORPHINE [Suspect]
     Active Substance: MORPHINE
     Indication: Rheumatoid arthritis
     Route: 048
  89. FOLIC ACID [Suspect]
     Active Substance: FOLIC ACID
     Indication: Rheumatoid arthritis
     Route: 065
  90. FOLIC ACID [Suspect]
     Active Substance: FOLIC ACID
     Route: 065
  91. FOLIC ACID [Suspect]
     Active Substance: FOLIC ACID
     Route: 065
  92. FOLIC ACID [Suspect]
     Active Substance: FOLIC ACID
     Route: 065
  93. FOLIC ACID [Suspect]
     Active Substance: FOLIC ACID
     Route: 065
  94. FOLIC ACID [Suspect]
     Active Substance: FOLIC ACID
     Route: 065
  95. FOLIC ACID [Suspect]
     Active Substance: FOLIC ACID
     Route: 048
  96. FOLIC ACID [Suspect]
     Active Substance: FOLIC ACID
     Route: 058
  97. CODEINE [Suspect]
     Active Substance: CODEINE
     Indication: Rheumatoid arthritis
     Route: 065
  98. CIMZIA [Suspect]
     Active Substance: CERTOLIZUMAB PEGOL
     Indication: Rheumatoid arthritis
     Route: 005
  99. CIMZIA [Suspect]
     Active Substance: CERTOLIZUMAB PEGOL
     Indication: Psoriasis
     Route: 058
  100. CHLORHEXIDINE [Suspect]
     Active Substance: CHLORHEXIDINE
     Indication: Rheumatoid arthritis
     Route: 065
  101. CHLORHEXIDINE [Suspect]
     Active Substance: CHLORHEXIDINE
     Route: 058
  102. CHLORAPREP [Suspect]
     Active Substance: CHLORHEXIDINE GLUCONATE\ISOPROPYL ALCOHOL
     Indication: Rheumatoid arthritis
     Route: 065
  103. CHLORAPREP [Suspect]
     Active Substance: CHLORHEXIDINE GLUCONATE\ISOPROPYL ALCOHOL
     Route: 058
  104. CELECOXIB [Suspect]
     Active Substance: CELECOXIB
     Indication: Rheumatoid arthritis
     Route: 048
  105. CELECOXIB [Suspect]
     Active Substance: CELECOXIB
     Indication: Off label use
     Route: 065
  106. CELECOXIB [Suspect]
     Active Substance: CELECOXIB
     Route: 048
  107. CELEBREX [Suspect]
     Active Substance: CELECOXIB
     Indication: Rheumatoid arthritis
     Route: 048
  108. CELEBREX [Suspect]
     Active Substance: CELECOXIB
     Indication: Off label use
     Route: 048
  109. CELEBREX [Suspect]
     Active Substance: CELECOXIB
     Route: 048
  110. CELEBREX [Suspect]
     Active Substance: CELECOXIB
     Route: 065
  111. CALCIUM LACTATE [Suspect]
     Active Substance: CALCIUM LACTATE
     Indication: Product used for unknown indication
     Route: 065
  112. CALCIUM GLUBIONATE [Suspect]
     Active Substance: CALCIUM GLUBIONATE
     Indication: Product used for unknown indication
     Route: 065
  113. CALCIUM GLUBIONATE [Suspect]
     Active Substance: CALCIUM GLUBIONATE
     Route: 065
  114. CALCIUM GLUBIONATE [Suspect]
     Active Substance: CALCIUM GLUBIONATE
     Route: 016
  115. CAFFEINE CITRATE [Suspect]
     Active Substance: CAFFEINE CITRATE
     Indication: Product used for unknown indication
     Route: 048
  116. CAFFEINE [Suspect]
     Active Substance: CAFFEINE
     Indication: Rheumatoid arthritis
     Route: 065
  117. AZATHIOPRINE [Suspect]
     Active Substance: AZATHIOPRINE
     Indication: Rheumatoid arthritis
     Route: 058
  118. ASACOL [Suspect]
     Active Substance: MESALAMINE
     Indication: Crohn^s disease
     Dosage: UNK (ENTERIC- COATED)
     Route: 065
  119. ARAVA [Suspect]
     Active Substance: LEFLUNOMIDE
     Indication: Rheumatoid arthritis
     Route: 065
  120. ARAVA [Suspect]
     Active Substance: LEFLUNOMIDE
     Route: 005
  121. ARAVA [Suspect]
     Active Substance: LEFLUNOMIDE
     Route: 065
  122. ARAVA [Suspect]
     Active Substance: LEFLUNOMIDE
     Route: 048
  123. ARAVA [Suspect]
     Active Substance: LEFLUNOMIDE
     Route: 065
  124. APREPITANT [Suspect]
     Active Substance: APREPITANT
     Indication: Product used for unknown indication
     Route: 048
  125. PREDNISONE [Suspect]
     Active Substance: PREDNISONE
     Indication: Rheumatoid arthritis
     Route: 048
  126. PREDNISONE [Suspect]
     Active Substance: PREDNISONE
     Indication: Condition aggravated
     Route: 065
  127. PANTOPRAZOLE SODIUM ANHYDROUS [Suspect]
     Active Substance: PANTOPRAZOLE SODIUM ANHYDROUS
     Indication: Product used for unknown indication
     Route: 065
  128. DIPHENHYDRAMINE HYDROCHLORIDE [Suspect]
     Active Substance: DIPHENHYDRAMINE HYDROCHLORIDE
     Indication: Product used for unknown indication
     Dosage: UNK (CAPLETS)
     Route: 048
  129. ALENDRONIC ACID [Suspect]
     Active Substance: ALENDRONIC ACID
     Indication: Rheumatoid arthritis
     Route: 048
  130. ALENDRONATE SODIUM [Suspect]
     Active Substance: ALENDRONATE SODIUM
     Indication: Rheumatoid arthritis
     Route: 058
  131. ALENDRONATE SODIUM [Suspect]
     Active Substance: ALENDRONATE SODIUM
     Route: 016
  132. ALENDRONATE SODIUM [Suspect]
     Active Substance: ALENDRONATE SODIUM
     Route: 048
  133. ADALIMUMAB [Suspect]
     Active Substance: ADALIMUMAB
     Indication: Product used for unknown indication
     Route: 065
  134. ACTEMRA [Suspect]
     Active Substance: TOCILIZUMAB
     Indication: Rheumatoid arthritis
     Route: 042
  135. ACTEMRA [Suspect]
     Active Substance: TOCILIZUMAB
     Route: 042
  136. ACTEMRA [Suspect]
     Active Substance: TOCILIZUMAB
     Route: 042
  137. ACTEMRA [Suspect]
     Active Substance: TOCILIZUMAB
     Route: 042
  138. ACTEMRA [Suspect]
     Active Substance: TOCILIZUMAB
     Route: 058
  139. ACETAMINOPHEN\OXYCODONE HYDROCHLORIDE [Suspect]
     Active Substance: ACETAMINOPHEN\OXYCODONE HYDROCHLORIDE
     Indication: Rheumatoid arthritis
     Route: 058
  140. ACETAMINOPHEN\OXYCODONE HYDROCHLORIDE [Suspect]
     Active Substance: ACETAMINOPHEN\OXYCODONE HYDROCHLORIDE
     Route: 048
  141. ACETAMINOPHEN\OXYCODONE HYDROCHLORIDE [Suspect]
     Active Substance: ACETAMINOPHEN\OXYCODONE HYDROCHLORIDE
     Route: 058
  142. ACETAMINOPHEN\OXYCODONE HYDROCHLORIDE [Suspect]
     Active Substance: ACETAMINOPHEN\OXYCODONE HYDROCHLORIDE
     Route: 048
  143. ACETAMINOPHEN\CAFFEINE\CODEINE PHOSPHATE [Suspect]
     Active Substance: ACETAMINOPHEN\CAFFEINE\CODEINE PHOSPHATE
     Indication: Product used for unknown indication
     Route: 048
  144. ACETAMINOPHEN\CAFFEINE\CODEINE PHOSPHATE [Suspect]
     Active Substance: ACETAMINOPHEN\CAFFEINE\CODEINE PHOSPHATE
     Route: 048
  145. FLUOROMETHOLONE [Suspect]
     Active Substance: FLUOROMETHOLONE
     Indication: Product used for unknown indication
     Route: 065
  146. COSENTYX [Suspect]
     Active Substance: SECUKINUMAB
     Indication: Rheumatoid arthritis
     Route: 005
  147. COSENTYX [Suspect]
     Active Substance: SECUKINUMAB
     Indication: Psoriatic arthropathy
     Route: 048
  148. PANADOL [Suspect]
     Active Substance: ACETAMINOPHEN
     Indication: Rheumatoid arthritis
     Dosage: UNK (EXTENDED- RELEASE)
     Route: 048
  149. PANADOL [Suspect]
     Active Substance: ACETAMINOPHEN
     Route: 058
  150. CALTRATE WITH VITAMIN D [Suspect]
     Active Substance: CALCIUM CARBONATE\CHOLECALCIFEROL
     Indication: Product used for unknown indication
     Route: 065
  151. CETIRIZINE HYDROCHLORIDE [Suspect]
     Active Substance: CETIRIZINE HYDROCHLORIDE
     Indication: Rheumatoid arthritis
     Route: 048
  152. CETIRIZINE HYDROCHLORIDE [Suspect]
     Active Substance: CETIRIZINE HYDROCHLORIDE
     Indication: Off label use
     Route: 016
  153. CETIRIZINE HYDROCHLORIDE [Suspect]
     Active Substance: CETIRIZINE HYDROCHLORIDE
     Route: 048
  154. CHILDRENS ADVIL [Suspect]
     Active Substance: IBUPROFEN
     Indication: Product used for unknown indication
     Route: 048
  155. LISINOPRIL [Suspect]
     Active Substance: LISINOPRIL
     Indication: Product used for unknown indication
     Route: 048
  156. HYDROXYCHLOROQUINE SULFATE [Suspect]
     Active Substance: HYDROXYCHLOROQUINE SULFATE
     Indication: Rheumatoid arthritis
     Route: 016
  157. HYDROXYCHLOROQUINE SULFATE [Suspect]
     Active Substance: HYDROXYCHLOROQUINE SULFATE
     Route: 048
  158. HYDROXYCHLOROQUINE SULFATE [Suspect]
     Active Substance: HYDROXYCHLOROQUINE SULFATE
     Route: 048
  159. HYDROXYCHLOROQUINE SULFATE [Suspect]
     Active Substance: HYDROXYCHLOROQUINE SULFATE
     Route: 065
  160. HYDROXYCHLOROQUINE SULFATE [Suspect]
     Active Substance: HYDROXYCHLOROQUINE SULFATE
     Route: 048
  161. HYDROXYCHLOROQUINE SULFATE [Suspect]
     Active Substance: HYDROXYCHLOROQUINE SULFATE
     Route: 005
  162. HYDROXYCHLOROQUINE SULFATE [Suspect]
     Active Substance: HYDROXYCHLOROQUINE SULFATE
     Route: 048
  163. HYDROXYCHLOROQUINE SULFATE [Suspect]
     Active Substance: HYDROXYCHLOROQUINE SULFATE
     Route: 048
  164. HYDROXYCHLOROQUINE [Suspect]
     Active Substance: HYDROXYCHLOROQUINE
     Indication: Rheumatoid arthritis
     Route: 048
  165. HYDROXYCHLOROQUINE [Suspect]
     Active Substance: HYDROXYCHLOROQUINE
     Route: 048
  166. HYDROXYCHLOROQUINE [Suspect]
     Active Substance: HYDROXYCHLOROQUINE
     Route: 005
  167. HYDROCORTISONE SODIUM SUCCINATE [Suspect]
     Active Substance: HYDROCORTISONE SODIUM SUCCINATE
     Indication: Rheumatoid arthritis
     Route: 065
  168. HYDROCORTISONE PROBUTATE [Suspect]
     Active Substance: HYDROCORTISONE PROBUTATE
     Indication: Product used for unknown indication
     Route: 065
  169. HYALURONIDASE [Suspect]
     Active Substance: HYALURONIDASE\HYALURONIDASE (HUMAN RECOMBINANT)
     Indication: Product used for unknown indication
     Route: 065
  170. HUMIRA [Suspect]
     Active Substance: ADALIMUMAB
     Indication: Rheumatoid arthritis
     Route: 058
  171. HUMIRA [Suspect]
     Active Substance: ADALIMUMAB
     Route: 058
  172. HUMIRA [Suspect]
     Active Substance: ADALIMUMAB
     Route: 058
  173. HUMIRA [Suspect]
     Active Substance: ADALIMUMAB
     Dosage: UNK (SOLUTION SUBCUTANEOUS)
     Route: 058
  174. GLUCOSAMINE [Suspect]
     Active Substance: GLUCOSAMINE
     Indication: Rheumatoid arthritis
     Route: 048
  175. FOSAPREPITANT [Suspect]
     Active Substance: FOSAPREPITANT
     Indication: Rheumatoid arthritis
     Route: 065
  176. FOSAMAX [Suspect]
     Active Substance: ALENDRONATE SODIUM
     Indication: Rheumatoid arthritis
     Route: 005
  177. FOSAMAX [Suspect]
     Active Substance: ALENDRONATE SODIUM
     Route: 065
  178. FOSAMAX [Suspect]
     Active Substance: ALENDRONATE SODIUM
     Route: 048
  179. FOSAMAX [Suspect]
     Active Substance: ALENDRONATE SODIUM
     Route: 016
  180. FOSAMAX [Suspect]
     Active Substance: ALENDRONATE SODIUM
     Route: 058
  181. FLUMETHASONE PIVALATE [Suspect]
     Active Substance: FLUMETHASONE PIVALATE
     Indication: Rheumatoid arthritis
     Route: 065
  182. ETHINYL ESTRADIOL\NORETHINDRONE ACETATE [Suspect]
     Active Substance: ETHINYL ESTRADIOL\NORETHINDRONE ACETATE
     Indication: Product used for unknown indication
     Route: 065
  183. ERYTHROMYCIN [Suspect]
     Active Substance: ERYTHROMYCIN
     Indication: Product used for unknown indication
     Route: 065
  184. ERGOCALCIFEROL [Suspect]
     Active Substance: ERGOCALCIFEROL
     Indication: Rheumatoid arthritis
  185. ENBREL [Suspect]
     Active Substance: ETANERCEPT
     Indication: Rheumatoid arthritis
     Route: 058
  186. ENBREL [Suspect]
     Active Substance: ETANERCEPT
     Indication: Psoriatic arthropathy
     Route: 058
  187. ETANERCEPT [Suspect]
     Active Substance: ETANERCEPT
     Indication: Rheumatoid arthritis
     Route: 058
  188. ETANERCEPT [Suspect]
     Active Substance: ETANERCEPT
     Route: 065
  189. DOXYCYCLINE HYCLATE [Suspect]
     Active Substance: DOXYCYCLINE HYCLATE
     Indication: Rheumatoid arthritis
     Route: 058
  190. DOXYCYCLINE [Suspect]
     Active Substance: DOXYCYCLINE\DOXYCYCLINE HYCLATE
     Indication: Rheumatoid arthritis
     Route: 005
  191. DESOXIMETASONE [Suspect]
     Active Substance: DESOXIMETASONE
     Indication: Rheumatoid arthritis
     Route: 048
  192. DESOXIMETASONE [Suspect]
     Active Substance: DESOXIMETASONE
     Route: 048
  193. DESOXIMETASONE [Suspect]
     Active Substance: DESOXIMETASONE
     Route: 048
  194. DESOXIMETASONE [Suspect]
     Active Substance: DESOXIMETASONE
     Route: 065
  195. DESOXIMETASONE [Suspect]
     Active Substance: DESOXIMETASONE
     Route: 065
  196. DESOXIMETASONE [Suspect]
     Active Substance: DESOXIMETASONE
     Route: 016
  197. DESOXIMETASONE [Suspect]
     Active Substance: DESOXIMETASONE
     Route: 003
  198. DESOXIMETASONE [Suspect]
     Active Substance: DESOXIMETASONE
     Route: 067
  199. HYDROCORTISONE [Suspect]
     Active Substance: HYDROCORTISONE\HYDROCORTISONE ACETATE
     Indication: Rheumatoid arthritis
     Route: 058
  200. HYDROCORTISONE [Suspect]
     Active Substance: HYDROCORTISONE\HYDROCORTISONE ACETATE
     Route: 003
  201. HYDROCORTISONE [Suspect]
     Active Substance: HYDROCORTISONE\HYDROCORTISONE ACETATE
     Route: 048
  202. ASCORBIC ACID [Suspect]
     Active Substance: ASCORBIC ACID
     Indication: Rheumatoid arthritis
     Route: 065
  203. DIETARY SUPPLEMENT\HERBALS [Suspect]
     Active Substance: DIETARY SUPPLEMENT\HERBALS
     Indication: Product used for unknown indication
     Dosage: UNK (ROSA CANINA FRUIT)
     Route: 067
  204. COSENTYX [Concomitant]
     Active Substance: SECUKINUMAB
     Indication: Product used for unknown indication

REACTIONS (144)
  - Abdominal discomfort [Fatal]
  - Arthralgia [Fatal]
  - Peripheral swelling [Fatal]
  - Swelling [Fatal]
  - Fatigue [Fatal]
  - Memory impairment [Fatal]
  - Condition aggravated [Fatal]
  - Muscle spasms [Fatal]
  - Dislocation of vertebra [Fatal]
  - Abdominal pain upper [Fatal]
  - Vomiting [Fatal]
  - Adjustment disorder with depressed mood [Fatal]
  - Feeling hot [Fatal]
  - Bursitis [Fatal]
  - Joint range of motion decreased [Fatal]
  - Asthma [Fatal]
  - Breast cancer stage III [Fatal]
  - Pericarditis [Fatal]
  - Lip dry [Fatal]
  - Musculoskeletal pain [Fatal]
  - Pemphigus [Fatal]
  - Foot deformity [Fatal]
  - Folliculitis [Fatal]
  - Grip strength decreased [Fatal]
  - Rheumatoid factor positive [Fatal]
  - Paraesthesia [Fatal]
  - Wheezing [Fatal]
  - Rash [Fatal]
  - Frequent bowel movements [Fatal]
  - Weight decreased [Fatal]
  - Rheumatic fever [Fatal]
  - Muscular weakness [Fatal]
  - Urticaria [Fatal]
  - Ill-defined disorder [Fatal]
  - Hepatic cirrhosis [Fatal]
  - Alopecia [Fatal]
  - Arthropathy [Fatal]
  - Pain [Fatal]
  - Pyrexia [Fatal]
  - Swollen joint count [Fatal]
  - Crohn^s disease [Fatal]
  - Lung disorder [Fatal]
  - Retinitis [Fatal]
  - Swollen joint count increased [Fatal]
  - Delirium [Fatal]
  - Infection [Fatal]
  - Osteoarthritis [Fatal]
  - Oedema peripheral [Fatal]
  - Pulmonary fibrosis [Fatal]
  - Joint swelling [Fatal]
  - Insomnia [Fatal]
  - Impaired healing [Fatal]
  - X-ray abnormal [Fatal]
  - Rheumatoid arthritis [Fatal]
  - Liver injury [Fatal]
  - Abdominal pain [Fatal]
  - Asthenia [Fatal]
  - Maternal exposure timing unspecified [Fatal]
  - Autoimmune disorder [Fatal]
  - Walking aid user [Fatal]
  - Knee arthroplasty [Fatal]
  - Ear infection [Fatal]
  - Mobility decreased [Fatal]
  - Peripheral venous disease [Fatal]
  - Deep vein thrombosis postoperative [Fatal]
  - Glossodynia [Fatal]
  - Road traffic accident [Fatal]
  - Wound infection [Fatal]
  - Laryngitis [Fatal]
  - Sinusitis [Fatal]
  - Synovitis [Fatal]
  - Injury [Fatal]
  - Hypoaesthesia [Fatal]
  - Type 2 diabetes mellitus [Fatal]
  - Pneumonia [Fatal]
  - Exostosis [Fatal]
  - Weight increased [Fatal]
  - Amnesia [Fatal]
  - Helicobacter infection [Fatal]
  - Fibromyalgia [Fatal]
  - Anti-cyclic citrullinated peptide antibody positive [Fatal]
  - Lower limb fracture [Fatal]
  - Muscle injury [Fatal]
  - Pancreatitis [Fatal]
  - Anxiety [Fatal]
  - Dyspepsia [Fatal]
  - Drug hypersensitivity [Fatal]
  - Gastrointestinal disorder [Fatal]
  - Systemic lupus erythematosus [Fatal]
  - Maternal exposure during pregnancy [Fatal]
  - Dizziness [Fatal]
  - Hand deformity [Fatal]
  - Infusion related reaction [Fatal]
  - Irritable bowel syndrome [Fatal]
  - Hypercholesterolaemia [Fatal]
  - Musculoskeletal stiffness [Fatal]
  - Dry mouth [Fatal]
  - General physical health deterioration [Fatal]
  - Oedema [Fatal]
  - Osteoporosis [Fatal]
  - Liver disorder [Fatal]
  - Porphyria acute [Fatal]
  - Headache [Fatal]
  - Blister [Fatal]
  - Malaise [Fatal]
  - Nausea [Fatal]
  - Duodenal ulcer perforation [Fatal]
  - Inflammation [Fatal]
  - Pruritus [Fatal]
  - Sleep disorder due to a general medical condition [Fatal]
  - White blood cell count increased [Fatal]
  - Decreased appetite [Fatal]
  - Lupus vulgaris [Fatal]
  - Discomfort [Fatal]
  - Psoriatic arthropathy [Fatal]
  - Confusional state [Fatal]
  - C-reactive protein abnormal [Fatal]
  - Colitis ulcerative [Fatal]
  - Sleep disorder due to general medical condition, insomnia type [Fatal]
  - Hepatic enzyme increased [Fatal]
  - Depression [Fatal]
  - Laboratory test abnormal [Fatal]
  - Arthritis [Fatal]
  - Night sweats [Fatal]
  - Dyspnoea [Fatal]
  - Stomatitis [Fatal]
  - Visual impairment [Fatal]
  - Gait disturbance [Fatal]
  - Obesity [Fatal]
  - Wound [Fatal]
  - Blood cholesterol increased [Fatal]
  - Lower respiratory tract infection [Fatal]
  - Migraine [Fatal]
  - Hypertension [Fatal]
  - Nasopharyngitis [Fatal]
  - Contusion [Fatal]
  - Diarrhoea [Fatal]
  - Grip strength [Fatal]
  - Chest pain [Fatal]
  - Facet joint syndrome [Fatal]
  - Sciatica [Fatal]
  - Bone erosion [Fatal]
  - Hypersensitivity [Fatal]
  - Rectal haemorrhage [Fatal]
